FAERS Safety Report 11170302 (Version 2)
Quarter: 2017Q1

REPORT INFORMATION
  Report Type: Spontaneous
  Country: US (occurrence: US)
  Receive Date: 20150608
  Receipt Date: 20170324
  Transmission Date: 20170428
  Serious: Yes (Other)
  Sender: FDA-Public Use
  Company Number: US-AUROBINDO-AUR-APU-2015-04784

PATIENT
  Age: 14 Year
  Sex: Male
  Weight: 130 kg

DRUGS (1)
  1. DULOXETINE 30 MG [Suspect]
     Active Substance: DULOXETINE
     Indication: DEPRESSION
     Dosage: 30 MG, AND 60MG TOGETHER ONCE DAILY
     Route: 048

REACTIONS (3)
  - Suicidal ideation [Recovered/Resolved]
  - Incoherent [Recovered/Resolved]
  - Suicidal behaviour [Recovered/Resolved]
